FAERS Safety Report 4320320-9 (Version None)
Quarter: 2004Q1

REPORT INFORMATION
  Report Type: 
  Country: None (occurrence: None)
  Receive Date: 20040317
  Receipt Date: 20040305
  Transmission Date: 20041129
  Serious: Yes (Hospitalization)
  Sender: FDA-Public Use
  Company Number: PERI00204000634

PATIENT
  Age: 62 Year
  Sex: Male
  Weight: 70 kg

DRUGS (5)
  1. COVERSYL (PERINDOPRIL) [Suspect]
     Indication: ESSENTIAL HYPERTENSION
     Dosage: 8 MG DAILY PO, ONCE PO
     Route: 048
  2. AMIODARONE HCL [Suspect]
     Indication: ILL-DEFINED DISORDER
     Dosage: 200 MG DAILY PO
     Route: 048
     Dates: start: 20030718, end: 20030908
  3. PRAVASTATIN [Suspect]
     Indication: ILL-DEFINED DISORDER
     Dosage: 20 MG DAILY PO
     Route: 048
  4. ACETAMINOPHEN [Concomitant]
  5. ASPIRIN [Concomitant]

REACTIONS (4)
  - ARTHRALGIA [None]
  - DRUG INTERACTION [None]
  - JOINT SWELLING [None]
  - VASCULITIC RASH [None]
